FAERS Safety Report 23404872 (Version 4)
Quarter: 2024Q1

REPORT INFORMATION
  Report Type: Spontaneous
  Country: US (occurrence: US)
  Receive Date: 20240116
  Receipt Date: 20240219
  Transmission Date: 20240410
  Serious: No
  Sender: FDA-Public Use
  Company Number: US-SA-SAC20240111001595

PATIENT
  Age: 72 Year
  Sex: Female

DRUGS (3)
  1. DUPIXENT [Suspect]
     Active Substance: DUPILUMAB
     Indication: Urinary tract disorder
     Dosage: 600 MG, 1X
     Route: 058
     Dates: start: 20240103, end: 20240103
  2. DUPIXENT [Suspect]
     Active Substance: DUPILUMAB
     Indication: Dermatitis atopic
     Dosage: 300 MG, QOW
     Route: 058
     Dates: start: 20240117
  3. MOMETASONE [Concomitant]
     Active Substance: MOMETASONE
     Dosage: UNK UNK, BID
     Route: 061

REACTIONS (15)
  - Skin irritation [Recovered/Resolved]
  - Pyrexia [Recovered/Resolved]
  - Urinary tract disorder [Recovered/Resolved]
  - Condition aggravated [Recovered/Resolved]
  - Frequent bowel movements [Unknown]
  - Injection site discolouration [Not Recovered/Not Resolved]
  - Injection site urticaria [Recovering/Resolving]
  - Pruritus [Unknown]
  - Rash [Recovered/Resolved]
  - Injection site pruritus [Recovering/Resolving]
  - Injection site erythema [Recovering/Resolving]
  - Injection site swelling [Unknown]
  - Drug effective for unapproved indication [Unknown]
  - Product administered at inappropriate site [Unknown]
  - Inappropriate schedule of product administration [Unknown]

NARRATIVE: CASE EVENT DATE: 20240103
